FAERS Safety Report 7479807-2 (Version None)
Quarter: 2011Q2

REPORT INFORMATION
  Report Type: 
  Country: None (occurrence: None)
  Receive Date: 20110513
  Receipt Date: 20110502
  Transmission Date: 20111010
  Serious: Yes (Hospitalization)
  Sender: FDA-Public Use
  Company Number: AR-GENENTECH-318068

PATIENT
  Age: 70 Year
  Sex: Male

DRUGS (1)
  1. XOLAIR [Suspect]
     Indication: ASTHMA
     Dosage: 300 UNK, 1/MONTH

REACTIONS (2)
  - SKIN LESION [None]
  - ERYTHEMA [None]
